FAERS Safety Report 4595295-8 (Version None)
Quarter: 2005Q1

REPORT INFORMATION
  Report Type: 
  Country: None (occurrence: None)
  Receive Date: 20050223
  Receipt Date: 20050211
  Transmission Date: 20050727
  Serious: Yes (Other)
  Sender: FDA-Public Use
  Company Number: 2005028901

PATIENT
  Sex: Male

DRUGS (1)
  1. LIPITOR [Suspect]
     Indication: ILL-DEFINED DISORDER

REACTIONS (6)
  - ANXIETY [None]
  - BLOOD CHOLESTEROL INCREASED [None]
  - DEPRESSION [None]
  - HYPERTENSION [None]
  - PROSTATE CANCER [None]
  - TREATMENT NONCOMPLIANCE [None]
